FAERS Safety Report 5743397-2 (Version None)
Quarter: 2008Q2

REPORT INFORMATION
  Report Type: 
  Country: None (occurrence: None)
  Receive Date: 20080515
  Receipt Date: 20080515
  Transmission Date: 20081010
  Serious: Yes (Other)
  Sender: FDA-Public Use
  Company Number: None

PATIENT
  Age: 26 Year
  Sex: Male
  Weight: 116.1208 kg

DRUGS (1)
  1. ABILIFY [Suspect]
     Indication: DEPRESSION
     Dosage: 2MG ONCE DAILY PO
     Route: 048
     Dates: start: 20071201, end: 20080514

REACTIONS (3)
  - HYPOAESTHESIA [None]
  - ILL-DEFINED DISORDER [None]
  - NERVOUS SYSTEM DISORDER [None]
